FAERS Safety Report 17277792 (Version 1)
Quarter: 2020Q1

REPORT INFORMATION
  Report Type: Spontaneous
  Country: US (occurrence: US)
  Receive Date: 20200116
  Receipt Date: 20200116
  Transmission Date: 20200409
  Serious: Yes (Death, Hospitalization)
  Sender: FDA-Public Use
  Company Number: US-PFIZER INC-2020015763

PATIENT
  Age: 60 Year
  Sex: Female

DRUGS (4)
  1. LAMOTRIGINE. [Suspect]
     Active Substance: LAMOTRIGINE
     Dosage: UNK (INGESTION)
     Route: 048
  2. PROPANOLOL HCL [Suspect]
     Active Substance: PROPRANOLOL HYDROCHLORIDE
     Dosage: UNK (INGESTION)
     Route: 048
  3. PRIMIDONE. [Suspect]
     Active Substance: PRIMIDONE
     Dosage: UNK (INGESTION)
     Route: 048
  4. DULOXETINE. [Suspect]
     Active Substance: DULOXETINE
     Dosage: UNK (INGESTION)
     Route: 048

REACTIONS (1)
  - Completed suicide [Fatal]

NARRATIVE: CASE EVENT DATE: 2018
